FAERS Safety Report 6466962-6 (Version None)
Quarter: 2009Q4

REPORT INFORMATION
  Report Type: 
  Country: None (occurrence: None)
  Receive Date: 20091202
  Receipt Date: 20091119
  Transmission Date: 20100525
  Serious: Yes (Hospitalization)
  Sender: FDA-Public Use
  Company Number: FI-ELI_LILLY_AND_COMPANY-FI200910006622

PATIENT
  Age: 35 Year
  Sex: Male

DRUGS (2)
  1. ZYPADHERA [Suspect]
     Indication: SCHIZOPHRENIA
     Dosage: 300 MG, UNKNOWN
     Route: 030
     Dates: start: 20090923, end: 20090101
  2. ZYPREXA [Suspect]
     Route: 048
     Dates: start: 20090902, end: 20090924

REACTIONS (3)
  - ANXIETY [None]
  - INSOMNIA [None]
  - RESTLESSNESS [None]
